FAERS Safety Report 5674671-6 (Version None)
Quarter: 2008Q1

REPORT INFORMATION
  Report Type: 
  Country: None (occurrence: None)
  Receive Date: 20080320
  Receipt Date: 20080312
  Transmission Date: 20080703
  Serious: Yes (Hospitalization, Other)
  Sender: FDA-Public Use
  Company Number: B0497261A

PATIENT
  Age: 69 Year
  Sex: Male
  Weight: 95.5 kg

DRUGS (9)
  1. AVANDIA [Suspect]
     Indication: DRUG USE FOR UNKNOWN INDICATION
     Dates: start: 20050908
  2. METFORMIN HCL [Concomitant]
  3. SULPHONYLUREA [Concomitant]
  4. DIAMICRON [Concomitant]
  5. GLUCOBAY [Concomitant]
  6. GLUCOSAMINE [Concomitant]
  7. LIPIDIL [Concomitant]
  8. LIPITOR [Concomitant]
     Indication: BLOOD CHOLESTEROL INCREASED
  9. TRITACE [Concomitant]
     Indication: HYPERTENSION
     Route: 065

REACTIONS (8)
  - ATRIAL FIBRILLATION [None]
  - CARDIAC FAILURE [None]
  - CHEST DISCOMFORT [None]
  - CONGESTIVE CARDIOMYOPATHY [None]
  - DYSPNOEA [None]
  - DYSPNOEA EXERTIONAL [None]
  - OEDEMA PERIPHERAL [None]
  - ORTHOPNOEA [None]
